FAERS Safety Report 20621786 (Version 2)
Quarter: 2022Q2

REPORT INFORMATION
  Report Type: Report from Study
  Country: EG (occurrence: EG)
  Receive Date: 20220322
  Receipt Date: 20220530
  Transmission Date: 20220721
  Serious: Yes (Other)
  Sender: FDA-Public Use
  Company Number: EG-NOVARTISPH-NVSC2022EG055051

PATIENT
  Age: 43 Year
  Sex: Female

DRUGS (7)
  1. KISQALI [Suspect]
     Active Substance: RIBOCICLIB
     Indication: Breast cancer metastatic
     Dosage: 3 DOSAGE FORM, QD (STRAT DATE: JULY OR AUGUST 2018) (FOR 21 DAYS AND A WEEK OFF)
     Route: 065
     Dates: end: 201905
  2. FASLODEX [Concomitant]
     Active Substance: FULVESTRANT
     Indication: Metastatic neoplasm
     Dosage: UNK  (START DATE: JULY OR AUG 2018)(2 INJECTIONS EVERY 28 DAYS)
     Route: 065
     Dates: end: 201905
  3. AROMASIN [Concomitant]
     Active Substance: EXEMESTANE
     Indication: Metastatic neoplasm
     Dosage: 1 DOSAGE FORM, QD
     Route: 065
     Dates: start: 20220301
  4. LEVOTHYROXINE [Concomitant]
     Active Substance: LEVOTHYROXINE
     Indication: Hypothyroidism
     Dosage: 1 DOSAGE FORM (50 MCG), QD
     Route: 065
     Dates: start: 2012
  5. TAXOL [Concomitant]
     Active Substance: PACLITAXEL
     Indication: Product used for unknown indication
     Dosage: UNK
     Route: 065
  6. XELODA [Concomitant]
     Active Substance: CAPECITABINE
     Indication: Product used for unknown indication
     Dosage: UNK
     Route: 065
  7. CARBOPLATIN [Concomitant]
     Active Substance: CARBOPLATIN
     Indication: Product used for unknown indication
     Dosage: UNK
     Route: 065

REACTIONS (8)
  - Tumour marker abnormal [Unknown]
  - Full blood count abnormal [Not Recovered/Not Resolved]
  - Metastases to liver [Recovering/Resolving]
  - Fatigue [Not Recovered/Not Resolved]
  - Drug ineffective [Recovered/Resolved]
  - Breast cancer recurrent [Not Recovered/Not Resolved]
  - Febrile neutropenia [Recovered/Resolved]
  - Liver function test abnormal [Unknown]

NARRATIVE: CASE EVENT DATE: 20190201
